FAERS Safety Report 7818218-4 (Version None)
Quarter: 2011Q4

REPORT INFORMATION
  Report Type: 
  Country: None (occurrence: None)
  Receive Date: 20111017
  Receipt Date: 20111011
  Transmission Date: 20120403
  Serious: Yes (Hospitalization)
  Sender: FDA-Public Use
  Company Number: JP-B.I. PHARMACEUTICALS,INC./RIDGEFIELD-2011-BP-23966NB

PATIENT
  Age: 64 Year
  Sex: Male

DRUGS (5)
  1. CARVEDILOL [Concomitant]
     Dosage: 20 MG
     Route: 048
  2. MICARDIS [Concomitant]
     Dosage: 80 MG
     Route: 048
  3. ASPIRIN [Concomitant]
     Route: 048
     Dates: end: 20111001
  4. PRADAXA [Suspect]
     Indication: ATRIAL FIBRILLATION
     Dosage: 300 MG
     Route: 048
     Dates: start: 20110908, end: 20111005
  5. ADALAT [Concomitant]
     Dosage: 40 MG
     Route: 048

REACTIONS (1)
  - EMBOLISM [None]
